FAERS Safety Report 16271978 (Version 2)
Quarter: 2020Q1

REPORT INFORMATION
  Report Type: Spontaneous
  Country: US (occurrence: US)
  Receive Date: 20190503
  Receipt Date: 20200331
  Transmission Date: 20200409
  Serious: Yes (Death, Hospitalization, Other)
  Sender: FDA-Public Use
  Company Number: US-ASTRAZENECA-2019SE57835

PATIENT
  Age: 26324 Day
  Sex: Female
  Weight: 66.2 kg

DRUGS (62)
  1. NEXIUM [Suspect]
     Active Substance: ESOMEPRAZOLE MAGNESIUM
     Indication: GASTROOESOPHAGEAL REFLUX DISEASE
     Route: 048
     Dates: start: 201110, end: 201606
  2. NEXIUM [Suspect]
     Active Substance: ESOMEPRAZOLE MAGNESIUM
     Indication: GASTROOESOPHAGEAL REFLUX DISEASE
     Route: 048
     Dates: start: 20111017, end: 20160606
  3. PREVACID [Suspect]
     Active Substance: LANSOPRAZOLE
     Route: 065
     Dates: start: 201110, end: 201606
  4. PROTONIX [Suspect]
     Active Substance: PANTOPRAZOLE SODIUM
     Indication: GASTROOESOPHAGEAL REFLUX DISEASE
     Route: 065
     Dates: start: 201110, end: 201606
  5. ALPRAZOLAM. [Concomitant]
     Active Substance: ALPRAZOLAM
     Indication: ANXIETY
     Dates: end: 2018
  6. RANITIDINE. [Concomitant]
     Active Substance: RANITIDINE
  7. ATENOLOL. [Concomitant]
     Active Substance: ATENOLOL
  8. NEXIUM 24HR [Suspect]
     Active Substance: ESOMEPRAZOLE MAGNESIUM
     Route: 048
     Dates: start: 201110, end: 201606
  9. ULORIC [Concomitant]
     Active Substance: FEBUXOSTAT
     Dates: start: 2015, end: 2018
  10. COLECALCIFEROL [Concomitant]
     Active Substance: CHOLECALCIFEROL
     Indication: VITAMIN SUPPLEMENTATION
  11. AMITRIPTYLINE [Concomitant]
     Active Substance: AMITRIPTYLINE
  12. AMOX-CLAV [Concomitant]
     Active Substance: AMOXICILLIN\CLAVULANATE POTASSIUM
  13. AZITHROMYCIN ANHYDROUS. [Concomitant]
     Active Substance: AZITHROMYCIN ANHYDROUS
  14. CHOLESTYRAMINE. [Concomitant]
     Active Substance: CHOLESTYRAMINE
  15. MORPHINE SULFATE. [Concomitant]
     Active Substance: MORPHINE SULFATE
  16. NEXIUM [Suspect]
     Active Substance: ESOMEPRAZOLE MAGNESIUM
     Indication: GASTROOESOPHAGEAL REFLUX DISEASE
     Route: 048
     Dates: start: 20111007
  17. PROTONIX [Suspect]
     Active Substance: PANTOPRAZOLE SODIUM
     Indication: GASTROOESOPHAGEAL REFLUX DISEASE
     Dosage: GENERIC
     Route: 065
  18. SPIRONOLACTONE. [Concomitant]
     Active Substance: SPIRONOLACTONE
     Indication: OEDEMA
  19. POTASSIUM CL [Concomitant]
     Active Substance: POTASSIUM CHLORIDE
     Indication: MINERAL SUPPLEMENTATION
     Dates: end: 2018
  20. MYLANTA [Concomitant]
     Active Substance: ALUMINUM HYDROXIDE\DIMETHICONE\MAGNESIUM HYDROXIDE
     Dates: end: 2015
  21. CLONIDINE. [Concomitant]
     Active Substance: CLONIDINE
  22. DIAZEPAM. [Concomitant]
     Active Substance: DIAZEPAM
  23. FLUCONAZOLE. [Concomitant]
     Active Substance: FLUCONAZOLE
  24. KETOROLAC [Concomitant]
     Active Substance: KETOROLAC TROMETHAMINE
  25. OXYCODONE [Concomitant]
     Active Substance: OXYCODONE
  26. POLYETHYLENE GLYCOL [Concomitant]
     Active Substance: POLYETHYLENE GLYCOLS
  27. PROTONIX [Suspect]
     Active Substance: PANTOPRAZOLE SODIUM
     Indication: GASTROOESOPHAGEAL REFLUX DISEASE
     Route: 065
     Dates: start: 20121217, end: 20130731
  28. CRESTOR [Concomitant]
     Active Substance: ROSUVASTATIN CALCIUM
     Indication: BLOOD CHOLESTEROL
     Dates: end: 2018
  29. ATACAND HCT [Concomitant]
     Active Substance: CANDESARTAN CILEXETIL\HYDROCHLOROTHIAZIDE
  30. CYANOCOBALAMIN. [Concomitant]
     Active Substance: CYANOCOBALAMIN
  31. RISPERIDONE. [Concomitant]
     Active Substance: RISPERIDONE
     Dates: start: 2017, end: 2018
  32. FAMOTIDINE. [Concomitant]
     Active Substance: FAMOTIDINE
  33. LORAZEPAM. [Concomitant]
     Active Substance: LORAZEPAM
  34. METFORMIN [Concomitant]
     Active Substance: METFORMIN HYDROCHLORIDE
  35. ONDANSETRON [Concomitant]
     Active Substance: ONDANSETRON
  36. PRILOSEC [Suspect]
     Active Substance: OMEPRAZOLE MAGNESIUM
     Indication: GASTROOESOPHAGEAL REFLUX DISEASE
     Route: 048
     Dates: start: 2017, end: 2018
  37. PREVACID 24 HR [Suspect]
     Active Substance: LANSOPRAZOLE
     Route: 065
     Dates: start: 201110, end: 201606
  38. DIOVAN [Concomitant]
     Active Substance: VALSARTAN
     Indication: CARDIAC FAILURE
     Dates: start: 2010, end: 2017
  39. LEVOTHYROXINE SODIUM. [Concomitant]
     Active Substance: LEVOTHYROXINE SODIUM
     Indication: THYROID DISORDER
     Dates: end: 2018
  40. ZANTAC [Concomitant]
     Active Substance: RANITIDINE HYDROCHLORIDE
  41. ROLAIDS [Concomitant]
     Active Substance: CALCIUM CARBONATE\MAGNESIUM HYDROXIDE
     Dates: end: 2018
  42. LACTULOSE. [Concomitant]
     Active Substance: LACTULOSE
  43. TRADJENTA [Concomitant]
     Active Substance: LINAGLIPTIN
  44. CLONAZEPAM. [Concomitant]
     Active Substance: CLONAZEPAM
  45. INSULIN [Concomitant]
     Active Substance: INSULIN NOS
  46. DIOVAN [Concomitant]
     Active Substance: VALSARTAN
     Indication: HYPERTENSION
     Dates: start: 2010, end: 2017
  47. FUROSEMIDE. [Concomitant]
     Active Substance: FUROSEMIDE
     Indication: FLUID RETENTION
     Dates: end: 2018
  48. CARVEDILOL. [Concomitant]
     Active Substance: CARVEDILOL
     Indication: HYPERTENSION
     Dates: start: 2018
  49. ACETAMINOPHEN. [Concomitant]
     Active Substance: ACETAMINOPHEN
     Indication: PAIN
  50. TUMS [Concomitant]
     Active Substance: CALCIUM CARBONATE
     Dates: end: 2018
  51. BACLOFEN. [Concomitant]
     Active Substance: BACLOFEN
  52. CEPHALEXIN. [Concomitant]
     Active Substance: CEPHALEXIN
  53. CIPROFLOXACIN. [Concomitant]
     Active Substance: CIPROFLOXACIN
  54. PRAVASTATIN. [Concomitant]
     Active Substance: PRAVASTATIN
  55. PRILOSEC [Suspect]
     Active Substance: OMEPRAZOLE MAGNESIUM
     Indication: GASTROOESOPHAGEAL REFLUX DISEASE
     Route: 048
     Dates: start: 201110, end: 201606
  56. LISINOPRIL. [Concomitant]
     Active Substance: LISINOPRIL
     Indication: BLOOD PRESSURE ABNORMAL
     Dates: start: 2010
  57. DOXYCYCLINE HYCLATE. [Concomitant]
     Active Substance: DOXYCYCLINE HYCLATE
     Indication: URINARY TRACT INFECTION
     Dates: start: 2017, end: 2018
  58. GLIPIZIDE. [Concomitant]
     Active Substance: GLIPIZIDE
     Indication: BLOOD GLUCOSE ABNORMAL
     Dates: end: 2018
  59. ASPIRIN. [Concomitant]
     Active Substance: ASPIRIN
     Indication: COAGULOPATHY
     Dates: start: 2015, end: 2018
  60. GAVISCON [Concomitant]
     Active Substance: ALUMINUM HYDROXIDE\MAGNESIUM CARBONATE
     Dates: end: 2015
  61. DETROL LA [Concomitant]
     Active Substance: TOLTERODINE TARTRATE
  62. HUMALOG [Concomitant]
     Active Substance: INSULIN LISPRO

REACTIONS (6)
  - Chronic kidney disease [Not Recovered/Not Resolved]
  - Acute kidney injury [Not Recovered/Not Resolved]
  - Renal tubular necrosis [Unknown]
  - Death [Fatal]
  - Nephrogenic anaemia [Unknown]
  - Renal failure [Unknown]

NARRATIVE: CASE EVENT DATE: 20120109
